FAERS Safety Report 8398693-X (Version None)
Quarter: 2012Q2

REPORT INFORMATION
  Report Type: 
  Country: None (occurrence: None)
  Receive Date: 20120524
  Receipt Date: 20120510
  Transmission Date: 20120825
  Serious: Yes (Other)
  Sender: FDA-Public Use
  Company Number: 2012NA000042

PATIENT
  Age: 58 Year
  Sex: Male

DRUGS (2)
  1. DICLOFENAC SODIUM [Suspect]
     Indication: ARTHRALGIA
     Dosage: PO
     Route: 048
  2. DICLOFENAC SODIUM [Suspect]
     Indication: GOUT
     Dosage: PO
     Route: 048

REACTIONS (7)
  - GASTROINTESTINAL DISORDER [None]
  - HAEMATOCHEZIA [None]
  - LARGE INTESTINAL ULCER [None]
  - MICROCYTIC ANAEMIA [None]
  - DIZZINESS [None]
  - MALAISE [None]
  - ARTHRALGIA [None]
